FAERS Safety Report 24232228 (Version 2)
Quarter: 2024Q3

REPORT INFORMATION
  Report Type: Spontaneous
  Country: US (occurrence: US)
  Receive Date: 20240821
  Receipt Date: 20240823
  Transmission Date: 20241016
  Serious: Yes (Other)
  Sender: PFIZER
  Company Number: US-PFIZER INC-202400233105

PATIENT
  Age: 61 Year
  Sex: Male

DRUGS (27)
  1. XALKORI [Suspect]
     Active Substance: CRIZOTINIB
     Indication: Brain cancer metastatic
     Dosage: TAKE 1 CAPSULE (250 MG TOTAL) BY MOUTH 2 TIMES DAILY
     Route: 048
     Dates: start: 202407
  2. XALKORI [Suspect]
     Active Substance: CRIZOTINIB
     Indication: Glioblastoma
  3. KETAMINE HYDROCHLORIDE [Suspect]
     Active Substance: KETAMINE HYDROCHLORIDE
     Indication: Glioblastoma
     Dosage: UNK
  4. TYLENOL [Concomitant]
     Active Substance: ACETAMINOPHEN
     Dosage: TAKE 2 TABLETS BY MOUTH EVERY 8 HOURS.
     Route: 048
  5. LIPITOR [Concomitant]
     Active Substance: ATORVASTATIN CALCIUM
     Dosage: TAKE 1 TABLET BY MOUTH DAILY
     Route: 048
  6. LOTENSIN [Concomitant]
     Active Substance: BENAZEPRIL HYDROCHLORIDE
     Dosage: TAKE 1 TABLET BY MOUTH 2 TIMES DAILY PT STATED 2 TIMES DAILY.
     Route: 048
  7. BUSPAR [Concomitant]
     Active Substance: BUSPIRONE HYDROCHLORIDE
     Dosage: TAKE 1 BY MOUTH 2 TIMES DAILY.
     Route: 048
  8. DECADRON [Concomitant]
     Active Substance: DEXAMETHASONE
     Dosage: TAKE 2 TABLETS BY MOUTH 3 TIMES DAILY
     Route: 048
  9. DECADRON [Concomitant]
     Active Substance: DEXAMETHASONE
     Dosage: TAKE 2MG TONIGHT
     Route: 048
  10. DECADRON [Concomitant]
     Active Substance: DEXAMETHASONE
     Dosage: 2MG DAILY FOR 2 DAYS
     Route: 048
  11. DECADRON [Concomitant]
     Active Substance: DEXAMETHASONE
     Dosage: THEN 1 MG DAILY FOR 2 DAYS, THEN STOP.
     Route: 048
  12. LEXAPRO [Concomitant]
     Active Substance: ESCITALOPRAM OXALATE
     Dosage: TAKE 1 TABLET BY MOUTH 2 TIMES DAILY
     Route: 048
  13. PEPCID [Concomitant]
     Active Substance: FAMOTIDINE
     Dosage: TAKE 1 TABLET BY MOUTH 2 TIMES DAILY
     Route: 048
  14. LOPID [Concomitant]
     Active Substance: GEMFIBROZIL
     Dosage: TAKE 1 TABLET BY MOUTH DAILY
     Route: 048
  15. TENEX [Concomitant]
     Active Substance: GUANFACINE HYDROCHLORIDE
     Dosage: TAKE 1 TABLET BY MOUTH NIGHTLY
     Route: 048
  16. VISTARIL [Concomitant]
     Active Substance: HYDROXYZINE PAMOATE
     Dosage: 1 TABLET BY MOUTH NIGHTLY AS NEEDED FOR ANXIETY OR OTHER (INSOMNIA)
     Route: 048
  17. ADVIL [Concomitant]
     Active Substance: IBUPROFEN\IBUPROFEN SODIUM
     Indication: Pain
     Dosage: TAKEN 1 TABLET BY MOUTH EVERY 6 HOURS AS NEEDED FOR PAIN OR HEADACHES.
     Route: 048
  18. ADVIL [Concomitant]
     Active Substance: IBUPROFEN\IBUPROFEN SODIUM
     Indication: Headache
  19. MOTRIN [Concomitant]
     Active Substance: IBUPROFEN
     Indication: Pain
     Dosage: TAKEN 1 TABLET BY MOUTH EVERY 6 HOURS AS NEEDED FOR PAIN OR HEADACHES.
     Route: 048
  20. MOTRIN [Concomitant]
     Active Substance: IBUPROFEN
     Indication: Headache
  21. KEPPRA [Concomitant]
     Active Substance: LEVETIRACETAM
     Dosage: TAKE 1 TABLET BY MOUTH 2 TIMES DAILY
     Route: 048
  22. NAMENDA [Concomitant]
     Active Substance: MEMANTINE HYDROCHLORIDE
     Dosage: TAKE 1 TABLET BY MOUTH 2 TIMES DAILY
     Route: 048
  23. GLUCOPHAGE [Concomitant]
     Active Substance: METFORMIN HYDROCHLORIDE
     Dosage: TAKE 1 TABLET BY MOUTH 2 TIMES DAILY (WITH BREAKFAST + DINNER)
     Route: 048
  24. ZOFRAN [Concomitant]
     Active Substance: ONDANSETRON HYDROCHLORIDE
     Indication: Pain
     Dosage: TAKE 1 TABLET BY MOUTH EVERY 6 HOURS AS NEED FOR PAIN
     Route: 048
  25. ROXICODONE [Concomitant]
     Active Substance: OXYCODONE HYDROCHLORIDE
     Indication: Pain
     Dosage: 1 TABLET BY MOUTH EVERY 6 HOURS AS NEED FOR PAIN
     Route: 048
  26. SEROQUEL [Concomitant]
     Active Substance: QUETIAPINE FUMARATE
     Dosage: TAKE 1.5 TABLET BY MOUTH 2 TIMES DAILY
     Route: 048
  27. LEUKINE [Concomitant]
     Active Substance: SARGRAMOSTIM
     Dosage: INJECT 250 MCG UNDER THE SKIN TWICE A WEEK MIX ONE DOSE WITH 1ML BACTERIOSTATIC WATER
     Route: 058

REACTIONS (22)
  - Atrial fibrillation [Unknown]
  - Blood glucose increased [Not Recovered/Not Resolved]
  - Weight decreased [Unknown]
  - Heart rate abnormal [Unknown]
  - Visual acuity reduced [Unknown]
  - Sensory loss [Unknown]
  - Tremor [Unknown]
  - Nervousness [Unknown]
  - Balance disorder [Unknown]
  - Visual impairment [Not Recovered/Not Resolved]
  - Asthenia [Unknown]
  - Dysgeusia [Not Recovered/Not Resolved]
  - Malaise [Unknown]
  - Fatigue [Not Recovered/Not Resolved]
  - Visual field defect [Unknown]
  - Aphasia [Unknown]
  - Confusional state [Unknown]
  - Headache [Not Recovered/Not Resolved]
  - Ear pain [Not Recovered/Not Resolved]
  - Insomnia [Recovering/Resolving]
  - Off label use [Unknown]
  - Drug effective for unapproved indication [Unknown]

NARRATIVE: CASE EVENT DATE: 20240704
